FAERS Safety Report 10056498 (Version 4)
Quarter: 2014Q2

REPORT INFORMATION
  Report Type: Spontaneous
  Country: US (occurrence: None)
  Receive Date: 20140401
  Receipt Date: 20140616
  Transmission Date: 20141212
  Serious: Yes (Death, Other)
  Sender: FDA-Public Use
  Company Number: ADR-2014-00510

PATIENT
  Age: 62 Year
  Sex: Female

DRUGS (19)
  1. LIORESAL INTRATHECAL [Suspect]
     Indication: MUSCLE SPASTICITY
  2. UNSPECIFIED [Suspect]
  3. PROVENTIL INHALER [Suspect]
  4. ASPIRIN [Suspect]
  5. COLACE [Suspect]
  6. FERROUS SULFATE [Suspect]
  7. ADVAIR [Suspect]
  8. FOLIC ACID [Suspect]
  9. GABAPENTIN [Suspect]
  10. HYDROCODONE [Suspect]
  11. HYDRALAZINE [Suspect]
  12. LEVIMIR [Suspect]
  13. GLUCOPHAGE [Suspect]
  14. PRILOSEC [Suspect]
  15. MIRALAX [Suspect]
  16. PHENERGAN [Suspect]
  17. ZOLOFT [Suspect]
  18. ZOCOR [Suspect]
  19. DIOVAN [Suspect]

REACTIONS (11)
  - Device failure [None]
  - Urinary retention [None]
  - Haemorrhage [None]
  - Abdominal distension [None]
  - Cardio-respiratory arrest [None]
  - Post procedural complication [None]
  - No therapeutic response [None]
  - Device breakage [None]
  - Gastric dilatation [None]
  - Post procedural haemorrhage [None]
  - Constipation [None]
